FAERS Safety Report 8453923-0 (Version None)
Quarter: 2012Q2

REPORT INFORMATION
  Report Type: 
  Country: None (occurrence: None)
  Receive Date: 20120620
  Receipt Date: 20120613
  Transmission Date: 20120825
  Serious: Yes (Hospitalization, Other)
  Sender: FDA-Public Use
  Company Number: JP-BAXTER-2011BH036826

PATIENT
  Age: 46 Year
  Sex: Male
  Weight: 57 kg

DRUGS (8)
  1. DIANEAL PD-2 W/ DEXTROSE 1.5% [Suspect]
     Route: 033
     Dates: start: 20040101, end: 20060901
  2. DIANEAL PD-2 W/ DEXTROSE 4.25% [Suspect]
     Indication: RENAL FAILURE CHRONIC
     Route: 033
     Dates: start: 20020101, end: 20040101
  3. DIANEAL PD-2 W/ DEXTROSE 2.5% IN PLASTIC CONTAINER [Suspect]
     Indication: RENAL FAILURE CHRONIC
     Route: 033
     Dates: start: 19900101, end: 20020101
  4. DIANEAL 137 W/ DEXTROSE 1.5% IN PLASTIC CONTAINER [Suspect]
     Indication: RENAL FAILURE CHRONIC
     Route: 033
     Dates: start: 20020101, end: 20040101
  5. DIANEAL PD-2 W/ DEXTROSE 4.25% IN PLASTIC CONTAINER [Suspect]
     Route: 033
     Dates: start: 20040101, end: 20060901
  6. DIANEAL PD-2 W/ DEXTROSE 1.5% [Suspect]
     Route: 033
     Dates: start: 20000501, end: 20020101
  7. DIANEAL PD-2 W/ DEXTROSE 1.5% [Suspect]
     Route: 033
     Dates: start: 20020101, end: 20040101
  8. DIANEAL PD-2 W/ DEXTROSE 1.5% [Suspect]
     Indication: RENAL FAILURE CHRONIC
     Route: 033
     Dates: start: 19900801, end: 20000401

REACTIONS (2)
  - SCLEROSING ENCAPSULATING PERITONITIS [None]
  - NONINFECTIOUS PERITONITIS [None]
